FAERS Safety Report 7751065-0 (Version None)
Quarter: 2011Q3

REPORT INFORMATION
  Report Type: 
  Country: None (occurrence: None)
  Receive Date: 20110914
  Receipt Date: 20110721
  Transmission Date: 20111222
  Serious: No
  Sender: FDA-Public Use
  Company Number: US-MYLANLABS-2011S1015375

PATIENT
  Age: 64 Year
  Sex: Female

DRUGS (6)
  1. SPIRONOLACTONE [Suspect]
     Indication: FLUID RETENTION
     Route: 048
  2. CALCIUM CARBONATE [Concomitant]
     Route: 048
  3. METOPROLOL [Concomitant]
     Indication: BLOOD PRESSURE INCREASED
     Route: 048
     Dates: start: 20050101
  4. PRAVASTATIN [Concomitant]
     Indication: BLOOD CHOLESTEROL INCREASED
     Route: 048
     Dates: start: 20050101
  5. TRAMADOL HCL [Concomitant]
     Indication: BACK PAIN
     Route: 048
     Dates: start: 20030101
  6. TYLENOL PM [Concomitant]
     Indication: INSOMNIA
     Dosage: TWO AT BEDTIME.
     Route: 048

REACTIONS (2)
  - DRUG HYPERSENSITIVITY [None]
  - LICHENOID KERATOSIS [None]
